FAERS Safety Report 14578347 (Version 3)
Quarter: 2018Q2

REPORT INFORMATION
  Report Type: Spontaneous
  Country: DE (occurrence: DE)
  Receive Date: 20180227
  Receipt Date: 20180627
  Transmission Date: 20180711
  Serious: Yes (Hospitalization, Other)
  Sender: FDA-Public Use
  Company Number: PHHY2018DE020063

PATIENT
  Sex: Female

DRUGS (5)
  1. COSENTYX [Suspect]
     Active Substance: SECUKINUMAB
     Dosage: 150 MG, PER ADMINISTRATION
     Route: 065
     Dates: start: 20171226
  2. COSENTYX [Suspect]
     Active Substance: SECUKINUMAB
     Dosage: 150 MG, PER ADMINISTRATION
     Route: 065
     Dates: start: 20171219
  3. COSENTYX [Suspect]
     Active Substance: SECUKINUMAB
     Indication: PSORIATIC ARTHROPATHY
     Dosage: 150 MG, PER ADMINISTRATION
     Route: 065
     Dates: start: 20171212
  4. COSENTYX [Suspect]
     Active Substance: SECUKINUMAB
     Dosage: 150 MG, PER ADMINISTRATION
     Route: 065
     Dates: start: 20180102
  5. COSENTYX [Suspect]
     Active Substance: SECUKINUMAB
     Dosage: 150 MG, PER ADMINISTRATION
     Route: 065
     Dates: end: 20180109

REACTIONS (47)
  - Abscess bacterial [Unknown]
  - Skin disorder [Not Recovered/Not Resolved]
  - Rash [Not Recovered/Not Resolved]
  - Arthralgia [Not Recovered/Not Resolved]
  - Pharyngeal erythema [Unknown]
  - Hidradenitis [Unknown]
  - Vulvovaginal pruritus [Unknown]
  - Chronic sinusitis [Unknown]
  - Back pain [Unknown]
  - Trismus [Unknown]
  - Aphthous ulcer [Not Recovered/Not Resolved]
  - Dizziness [Not Recovered/Not Resolved]
  - Pruritus [Not Recovered/Not Resolved]
  - Dysphagia [Not Recovered/Not Resolved]
  - Pruritus genital [Unknown]
  - Swelling [Unknown]
  - Nausea [Not Recovered/Not Resolved]
  - Musculoskeletal stiffness [Not Recovered/Not Resolved]
  - Pain in extremity [Recovered/Resolved]
  - Dysphonia [Unknown]
  - Ear pain [Unknown]
  - Pain [Unknown]
  - Immunology test abnormal [Unknown]
  - Rash pustular [Not Recovered/Not Resolved]
  - Gastrointestinal infection [Not Recovered/Not Resolved]
  - Peripheral swelling [Recovered/Resolved]
  - Tongue disorder [Not Recovered/Not Resolved]
  - Facial pain [Unknown]
  - Erythema [Not Recovered/Not Resolved]
  - Pain in jaw [Not Recovered/Not Resolved]
  - Laryngeal pain [Not Recovered/Not Resolved]
  - Headache [Unknown]
  - Renal pain [Unknown]
  - Genital abscess [Not Recovered/Not Resolved]
  - Granulomatosis with polyangiitis [Unknown]
  - Musculoskeletal pain [Recovered/Resolved]
  - Dysuria [Not Recovered/Not Resolved]
  - Oropharyngeal discomfort [Not Recovered/Not Resolved]
  - Fatigue [Unknown]
  - Decreased appetite [Unknown]
  - Amenorrhoea [Recovered/Resolved]
  - Dyspnoea [Unknown]
  - Rash pustular [Unknown]
  - Inflammation [Not Recovered/Not Resolved]
  - Oropharyngeal pain [Not Recovered/Not Resolved]
  - Weight decreased [Unknown]
  - Genital rash [Unknown]

NARRATIVE: CASE EVENT DATE: 201712
